FAERS Safety Report 7406922-1 (Version None)
Quarter: 2011Q2

REPORT INFORMATION
  Report Type: 
  Country: None (occurrence: None)
  Receive Date: 20110406
  Receipt Date: 20110406
  Transmission Date: 20111010
  Serious: Yes (Disabling)
  Sender: FDA-Public Use
  Company Number: None

PATIENT
  Sex: Male
  Weight: 70.3075 kg

DRUGS (2)
  1. LIPITOR [Suspect]
     Indication: ILL-DEFINED DISORDER
     Dosage: 10 MGS ONCE A DAY
     Dates: start: 20100601, end: 20100815
  2. LIPITOR [Suspect]
     Indication: ILL-DEFINED DISORDER
     Dosage: 10 MGS ONCE A DAY
     Dates: start: 20110301, end: 20110312

REACTIONS (3)
  - MYALGIA [None]
  - MUSCLE INJURY [None]
  - PAIN [None]
